FAERS Safety Report 7757878-3 (Version None)
Quarter: 2011Q3

REPORT INFORMATION
  Report Type: 
  Country: None (occurrence: None)
  Receive Date: 20110918
  Receipt Date: 20110906
  Transmission Date: 20111222
  Serious: Yes (Death)
  Sender: FDA-Public Use
  Company Number: US-BRISTOL-MYERS SQUIBB COMPANY-16065039

PATIENT

DRUGS (6)
  1. DACARBAZINE [Suspect]
     Indication: MALIGNANT MELANOMA
     Dosage: ON DAY 3-5 AND 24-26
     Route: 042
  2. PROLEUKIN [Suspect]
     Indication: MALIGNANT MELANOMA
     Dosage: 1DF:11 MIU ON DAYS 8,12,29,31,33.
     Route: 058
  3. INTERFERON ALFA [Suspect]
     Indication: MALIGNANT MELANOMA
     Dosage: 1DF:6.0 MU/SQ.M ON DAYS 8-12 AND 29-33
     Route: 058
  4. BICNU [Suspect]
     Indication: MALIGNANT MELANOMA
     Dosage: ON DAY 3
     Route: 042
  5. CISPLATIN [Suspect]
     Indication: MALIGNANT MELANOMA
     Dosage: EVERY 3 WK ON DAYS 3-5 AND 24-26
     Route: 042
  6. TAMOXIFEN CITRATE [Suspect]
     Indication: MALIGNANT MELANOMA
     Dosage: ON DAY 1-41
     Route: 048

REACTIONS (2)
  - COMA [None]
  - SYNCOPE [None]
